FAERS Safety Report 25456114 (Version 1)
Quarter: 2025Q2

REPORT INFORMATION
  Report Type: Report from Study
  Country: BR (occurrence: BR)
  Receive Date: 20250619
  Receipt Date: 20250619
  Transmission Date: 20250717
  Serious: Yes (Other)
  Sender: TAKEDA
  Company Number: BR-TAKEDA-2022TUS083953

PATIENT
  Age: 53 Year
  Sex: Female

DRUGS (6)
  1. VEDOLIZUMAB [Suspect]
     Active Substance: VEDOLIZUMAB
     Indication: Colitis ulcerative
  2. AMITRIPTYLINE [Concomitant]
     Active Substance: AMITRIPTYLINE
     Indication: Depression
     Dosage: 25 MILLIGRAM, BID
  3. CLONAZEPAM [Concomitant]
     Active Substance: CLONAZEPAM
     Indication: Depression
     Dosage: 2 MILLIGRAM, QD
  4. CITALOPRAM [Concomitant]
     Active Substance: CITALOPRAM
     Indication: Depression
     Dosage: 20 MILLIGRAM, QID
  5. GLIFAGE [Concomitant]
     Active Substance: METFORMIN HYDROCHLORIDE
     Indication: Diabetes mellitus
     Dosage: UNK, TID
  6. GLYBURIDE [Concomitant]
     Active Substance: GLYBURIDE
     Dosage: 5 MILLIGRAM, BID

REACTIONS (17)
  - Faecaloma [Unknown]
  - Pain [Unknown]
  - Illness [Unknown]
  - Inappropriate schedule of product administration [Recovering/Resolving]
  - Product availability issue [Unknown]
  - Bone pain [Unknown]
  - Insomnia [Unknown]
  - Abdominal pain upper [Unknown]
  - Dyschezia [Unknown]
  - Anxiety [Unknown]
  - Faeces hard [Unknown]
  - Arthralgia [Unknown]
  - Oropharyngeal pain [Unknown]
  - Pyrexia [Unknown]
  - Nausea [Unknown]
  - Pain in extremity [Unknown]
  - Depression [Unknown]

NARRATIVE: CASE EVENT DATE: 20240909
